FAERS Safety Report 5492939-3 (Version None)
Quarter: 2007Q4

REPORT INFORMATION
  Report Type: 
  Country: None (occurrence: None)
  Receive Date: 20071023
  Receipt Date: 20071012
  Transmission Date: 20080405
  Serious: Yes (Other)
  Sender: FDA-Public Use
  Company Number: US-JNJFOC-20071003486

PATIENT
  Sex: Female

DRUGS (7)
  1. REMICADE [Suspect]
  2. REMICADE [Suspect]
     Indication: COLITIS ULCERATIVE
  3. MESALAMINE [Concomitant]
  4. TYLENOL (CAPLET) [Concomitant]
     Indication: PREMEDICATION
  5. BENADRYL [Concomitant]
     Indication: PREMEDICATION
  6. ADVIL LIQUI-GELS [Concomitant]
  7. ALESSE [Concomitant]

REACTIONS (4)
  - ASTHMA [None]
  - FACE OEDEMA [None]
  - PRURITUS [None]
  - SWOLLEN TONGUE [None]
